FAERS Safety Report 6234228-5 (Version None)
Quarter: 2009Q2

REPORT INFORMATION
  Report Type: 
  Country: None (occurrence: None)
  Receive Date: 20090615
  Receipt Date: 20090218
  Transmission Date: 20091009
  Serious: Yes (Other)
  Sender: FDA-Public Use
  Company Number: 430011M09USA

PATIENT
  Age: 40 Year
  Sex: Female

DRUGS (1)
  1. NOVANTRONE [Suspect]
     Indication: MULTIPLE SCLEROSIS
     Dosage: INTRAVENOUS
     Route: 042

REACTIONS (7)
  - INFUSION SITE DISCOLOURATION [None]
  - INFUSION SITE ERYTHEMA [None]
  - INFUSION SITE PAIN [None]
  - INFUSION SITE PHLEBITIS [None]
  - INFUSION SITE PRURITUS [None]
  - INFUSION SITE SWELLING [None]
  - INJECTION SITE EXTRAVASATION [None]
